FAERS Safety Report 7006983-8 (Version None)
Quarter: 2010Q3

REPORT INFORMATION
  Report Type: 
  Country: None (occurrence: None)
  Receive Date: 20100922
  Receipt Date: 20100914
  Transmission Date: 20110219
  Serious: Yes (Death)
  Sender: FDA-Public Use
  Company Number: CZ-JNJFOC-20100905734

PATIENT
  Sex: Male
  Weight: 90 kg

DRUGS (4)
  1. TAPENTADOL [Suspect]
     Route: 048
  2. TAPENTADOL [Suspect]
     Indication: PAIN
     Route: 048
  3. SEVREDOL [Concomitant]
     Indication: PAIN
     Route: 048
  4. RANISAN [Concomitant]
     Indication: GASTRIC ULCER
     Route: 048

REACTIONS (1)
  - DEATH [None]
